FAERS Safety Report 8877491 (Version 1)
Quarter: 2012Q4

REPORT INFORMATION
  Report Type: 
  Country: FR (occurrence: FR)
  Receive Date: 20121024
  Receipt Date: 20121024
  Transmission Date: 20130627
  Serious: Yes (Hospitalization)
  Sender: FDA-Public Use
  Company Number: FR-PFIZER INC-2012257095

PATIENT
  Age: 85 Year
  Sex: Female

DRUGS (15)
  1. EFFEXOR LP [Suspect]
     Indication: DEPRESSION
     Dosage: 75 mg, 1x/day
     Route: 048
     Dates: start: 20100910
  2. CEFIXIME [Suspect]
     Indication: INFECTION
     Dosage: 200 mg, UNK
     Route: 048
     Dates: start: 20120720, end: 20120725
  3. PREVISCAN [Suspect]
     Indication: THROMBOSIS PROPHYLAXIS
     Dosage: 5mg and 15mg per day alternating dose,
     Route: 048
     Dates: start: 20120426, end: 20120725
  4. DUROGESIC [Concomitant]
  5. ACTISKENAN [Concomitant]
  6. TERCIAN [Concomitant]
  7. THERALENE [Concomitant]
  8. DAFALGAN [Concomitant]
  9. CORDARONE [Concomitant]
  10. DIAMICRON [Concomitant]
  11. DUSPATALIN ^SOLVAY^ [Concomitant]
  12. INEXIUM [Concomitant]
  13. LASILIX [Concomitant]
  14. SPASFON [Concomitant]
  15. TRIMEBUTINE [Concomitant]

REACTIONS (1)
  - Abdominal wall haematoma [Recovering/Resolving]
